FAERS Safety Report 14596834 (Version 5)
Quarter: 2018Q2

REPORT INFORMATION
  Report Type: Report from Study
  Country: None (occurrence: JP)
  Receive Date: 20180304
  Receipt Date: 20180525
  Transmission Date: 20180711
  Serious: Yes (Death, Hospitalization, Other)
  Sender: FDA-Public Use
  Company Number: JP-ABBVIE-18P-087-2275851-00

PATIENT
  Age: 76 Year
  Sex: Male
  Weight: 37 kg

DRUGS (1)
  1. LEUPLIN [Suspect]
     Active Substance: LEUPROLIDE ACETATE
     Indication: BULBOSPINAL MUSCULAR ATROPHY CONGENITAL
     Dosage: 11.25 MG, Q3MONTHS
     Route: 058
     Dates: start: 20170927, end: 20180307

REACTIONS (2)
  - Bulbospinal muscular atrophy congenital [Fatal]
  - Respiratory failure [Fatal]

NARRATIVE: CASE EVENT DATE: 20180216
